FAERS Safety Report 21578337 (Version 1)
Quarter: 2022Q4

REPORT INFORMATION
  Report Type: Report from Study
  Country: US (occurrence: US)
  Receive Date: 20221110
  Receipt Date: 20221110
  Transmission Date: 20230113
  Serious: No
  Sender: FDA-Public Use
  Company Number: US-ABBVIE-4137905

PATIENT
  Sex: Female

DRUGS (1)
  1. HUMIRA [Suspect]
     Active Substance: ADALIMUMAB
     Indication: Rheumatoid arthritis
     Dosage: CF ?FORM STRENGTH 40 MILLIGRAM?DRUG END DATE 2022
     Route: 058
     Dates: start: 20220829

REACTIONS (1)
  - Sinusitis [Unknown]
